FAERS Safety Report 18029989 (Version 1)
Quarter: 2020Q3

REPORT INFORMATION
  Report Type: Report from Study
  Country: IT (occurrence: IT)
  Receive Date: 20200715
  Receipt Date: 20200715
  Transmission Date: 20201103
  Serious: Yes (Life-Threatening)
  Sender: FDA-Public Use
  Company Number: IT-SHIONOGI, INC.-2020000395

PATIENT

DRUGS (7)
  1. PROPOFOL. [Concomitant]
     Active Substance: PROPOFOL
     Indication: SEDATION
     Dosage: 300 MG/H, CONT
     Route: 042
     Dates: start: 20200411
  2. BLINDED S?649266 [Suspect]
     Active Substance: CEFIDEROCOL
     Indication: SEPSIS
     Dosage: 2 G, TID
     Route: 042
     Dates: start: 20200525, end: 20200528
  3. COLISTIN [Concomitant]
     Active Substance: COLISTIN
     Indication: SEPSIS
     Dosage: 4.5 MU, BID
     Route: 042
     Dates: start: 20200515
  4. INSULIN [Concomitant]
     Active Substance: INSULIN NOS
     Indication: DIABETES MELLITUS
     Dosage: 50 IU, CONT
     Route: 042
     Dates: start: 20200411
  5. FENTANEST [Concomitant]
     Active Substance: FENTANYL CITRATE
     Indication: SEDATION
     Dosage: 0.05 MG/H, CONT
     Route: 042
     Dates: start: 20200411
  6. HEPARIN [Concomitant]
     Active Substance: HEPARIN SODIUM
     Indication: PROPHYLAXIS
     Dosage: 1200 IU/H, CONT
     Route: 042
     Dates: start: 20200411
  7. FUROSEMIDE. [Concomitant]
     Active Substance: FUROSEMIDE
     Indication: OEDEMA
     Dosage: 60 MG, QD
     Route: 042
     Dates: start: 20200411

REACTIONS (2)
  - Cardiac arrest [Recovered/Resolved]
  - Cardiac arrest [Recovered/Resolved]

NARRATIVE: CASE EVENT DATE: 20200527
